FAERS Safety Report 6839275-8 (Version None)
Quarter: 2010Q3

REPORT INFORMATION
  Report Type: 
  Country: None (occurrence: None)
  Receive Date: 20100714
  Receipt Date: 20100414
  Transmission Date: 20110219
  Serious: No
  Sender: FDA-Public Use
  Company Number: US-KINGPHARMUSA00001-K201000436

PATIENT
  Sex: Male

DRUGS (1)
  1. BICILLIN L-A [Suspect]
     Dosage: 2400000 IU, SINGLE
     Dates: start: 20100414, end: 20100414

REACTIONS (2)
  - EXPIRED DRUG ADMINISTERED [None]
  - NO ADVERSE EVENT [None]
